FAERS Safety Report 14943165 (Version 1)
Quarter: 2018Q2

REPORT INFORMATION
  Report Type: Spontaneous
  Country: FR (occurrence: FR)
  Receive Date: 20180528
  Receipt Date: 20180528
  Transmission Date: 20180711
  Serious: Yes (Life-Threatening, Hospitalization)
  Sender: FDA-Public Use
  Company Number: FR-TEVA-2018-FR-898178

PATIENT
  Age: 64 Year
  Sex: Male
  Weight: 93 kg

DRUGS (5)
  1. SOLUPRED (PREDNISOLONE SODIUM SULFOBENZOATE) [Suspect]
     Active Substance: PREDNISOLONE SODIUM METAZOATE
     Indication: BRONCHITIS
     Route: 048
     Dates: start: 20151120, end: 20151123
  2. SILDENAFIL. [Suspect]
     Active Substance: SILDENAFIL
     Route: 065
  3. ROVAMYCINE [Suspect]
     Active Substance: SPIRAMYCIN
     Indication: BRONCHITIS
     Route: 048
     Dates: start: 20151120, end: 20151123
  4. ASPIRINE PROTECT [Suspect]
     Active Substance: ASPIRIN
     Route: 048
  5. POLERY [Suspect]
     Active Substance: CODEINE\SISYMBRIUM OFFICINALE WHOLE
     Indication: BRONCHITIS
     Route: 048
     Dates: start: 20151120, end: 20151123

REACTIONS (1)
  - Cardio-respiratory arrest [Recovering/Resolving]

NARRATIVE: CASE EVENT DATE: 20151123
